FAERS Safety Report 9126571 (Version 1)
Quarter: 2013Q1

REPORT INFORMATION
  Report Type: Spontaneous
  Country: US (occurrence: US)
  Receive Date: 20130117
  Receipt Date: 20130117
  Transmission Date: 20140127
  Serious: Yes (Hospitalization)
  Sender: FDA-Public Use
  Company Number: US-BAYER-2013-004447

PATIENT
  Age: 22 Year
  Sex: Female

DRUGS (6)
  1. YASMIN [Suspect]
  2. ZITHROMAX [Concomitant]
  3. LEVAQUIN [Concomitant]
  4. IBUPROFEN [Concomitant]
  5. NORCO [Concomitant]
  6. ANTIBIOTICS [Concomitant]
     Indication: PNEUMONIA

REACTIONS (1)
  - Pulmonary embolism [None]
